FAERS Safety Report 22193292 (Version 1)
Quarter: 2023Q2

REPORT INFORMATION
  Report Type: Spontaneous
  Country: GB (occurrence: GB)
  Receive Date: 20230410
  Receipt Date: 20230410
  Transmission Date: 20230721
  Serious: Yes (Disabling, Other)
  Sender: FDA-Public Use
  Company Number: GB-MHRA-MED-202304071254165870-DPRZM

PATIENT
  Age: 44 Year
  Sex: Male

DRUGS (6)
  1. RINVOQ [Suspect]
     Active Substance: UPADACITINIB
     Indication: Dermatitis atopic
     Dosage: 30MG ONCE DAILY
     Route: 048
     Dates: start: 20220530, end: 20230110
  2. EMOLLIN [Concomitant]
     Indication: Dermatitis atopic
     Dates: start: 20220819
  3. NEOCLARITYN [Concomitant]
     Active Substance: DESLORATADINE
     Indication: Hypersensitivity
     Dates: start: 20180430
  4. SYMBICORT [Concomitant]
     Active Substance: BUDESONIDE\FORMOTEROL FUMARATE DIHYDRATE
     Indication: Asthma
     Dates: start: 20130730
  5. HYDROMOL [Concomitant]
     Indication: Dermatitis atopic
     Dosage: EMOLLIENT
     Dates: start: 20220820
  6. ELOCON [Concomitant]
     Active Substance: MOMETASONE FUROATE
     Indication: Dermatitis atopic
     Dates: start: 20220820

REACTIONS (4)
  - Eye swelling [Recovered/Resolved]
  - Eyelid oedema [Recovered/Resolved]
  - Angioedema [Recovered/Resolved]
  - Dry skin [Unknown]

NARRATIVE: CASE EVENT DATE: 20230110
